FAERS Safety Report 6650423-5 (Version None)
Quarter: 2010Q1

REPORT INFORMATION
  Report Type: 
  Country: None (occurrence: None)
  Receive Date: 20100322
  Receipt Date: 20100311
  Transmission Date: 20100710
  Serious: Yes (Other)
  Sender: FDA-Public Use
  Company Number: 008669

PATIENT
  Age: 91 Year
  Sex: Female

DRUGS (1)
  1. KEPPRA [Suspect]
     Dosage: (500 MG BID ORAL)
     Route: 048

REACTIONS (1)
  - BONE MARROW FAILURE [None]
